FAERS Safety Report 18231863 (Version 1)
Quarter: 2020Q3

REPORT INFORMATION
  Report Type: Spontaneous
  Country: NZ (occurrence: NZ)
  Receive Date: 20200903
  Receipt Date: 20200903
  Transmission Date: 20201103
  Serious: Yes (Disabling)
  Sender: FDA-Public Use
  Company Number: None

PATIENT
  Age: 26 Year
  Sex: Female
  Weight: 68 kg

DRUGS (4)
  1. MULTIVITAMIN [Concomitant]
     Active Substance: VITAMINS
  2. ZOLOFT [Suspect]
     Active Substance: SERTRALINE HYDROCHLORIDE
     Indication: ANXIETY
     Route: 048
     Dates: start: 20181120, end: 20190313
  3. WELLBUTRIN [Concomitant]
     Active Substance: BUPROPION HYDROCHLORIDE
  4. SYMBICORT [Concomitant]
     Active Substance: BUDESONIDE\FORMOTEROL FUMARATE DIHYDRATE

REACTIONS (5)
  - Libido decreased [None]
  - Anorgasmia [None]
  - Vulvovaginal dryness [None]
  - Depression [None]
  - Suicidal ideation [None]

NARRATIVE: CASE EVENT DATE: 20190315
